FAERS Safety Report 7562198-6 (Version None)
Quarter: 2011Q2

REPORT INFORMATION
  Report Type: 
  Country: None (occurrence: None)
  Receive Date: 20110614
  Receipt Date: 20110531
  Transmission Date: 20111010
  Serious: Yes (Life-Threatening, Hospitalization, Other)
  Sender: FDA-Public Use
  Company Number: GER/GER/11/0018617

PATIENT
  Age: 70 Year
  Sex: Male
  Weight: 77 kg

DRUGS (8)
  1. FRAXIPARIN (HEPARIN-FRACTION, CALCIUM SALT) [Concomitant]
  2. GENTAMICIN [Suspect]
     Indication: PRODUCT USED FOR UNKNOWN INDICATION
     Dosage: INTRAVENOUS (NOT OTHERWISE SPCIFIED)
     Route: 042
     Dates: start: 20110103, end: 20110119
  3. PROTAPHANE (INSULIN HUMAN INJECTION, ISOPHANE) [Concomitant]
  4. ZINACEF [Suspect]
     Indication: ENDOCARDITIS
     Dosage: INTRAVENOUS (NOT OTHERWISE SPECIFIED)
     Route: 042
     Dates: start: 20110113, end: 20110119
  5. MIDAZOLAM HCL [Concomitant]
  6. FENISTIL (DIMETINDENE MALEATE) [Concomitant]
  7. SOBELIN (CLINDAMYCIN HYDROCHLORIDE) [Concomitant]
  8. RAMIPRIL [Suspect]
     Indication: PRODUCT USED FOR UNKNOWN INDICATION
     Dosage: 2.5 MG, BREAK: 03 JAN 2011, OROPHARINGEAL
     Route: 049
     Dates: start: 20100201, end: 20110119

REACTIONS (5)
  - EMPYEMA [None]
  - RENAL FAILURE ACUTE [None]
  - ENDOCARDITIS [None]
  - STREPTOCOCCAL INFECTION [None]
  - BLOOD CULTURE POSITIVE [None]
